FAERS Safety Report 8399322-1 (Version None)
Quarter: 2012Q2

REPORT INFORMATION
  Report Type: 
  Country: None (occurrence: None)
  Receive Date: 20120531
  Receipt Date: 20120529
  Transmission Date: 20120825
  Serious: No
  Sender: FDA-Public Use
  Company Number: US-PFIZER INC-2012118898

PATIENT
  Sex: Female
  Weight: 100 kg

DRUGS (2)
  1. MOBIC [Concomitant]
     Indication: ARTHRITIS
     Dosage: 15 MG,DAILY
  2. LYRICA [Suspect]
     Indication: FIBROMYALGIA
     Dosage: 75 MG, 3X/DAY
     Route: 048

REACTIONS (2)
  - PAIN [None]
  - NAUSEA [None]
